FAERS Safety Report 25059460 (Version 1)
Quarter: 2025Q1

REPORT INFORMATION
  Report Type: Spontaneous
  Country: CA (occurrence: None)
  Receive Date: 20250310
  Receipt Date: 20250310
  Transmission Date: 20250408
  Serious: Yes (Life-Threatening, Disabling)
  Sender: FDA-CTU
  Company Number: None

PATIENT
  Age: 35 Year
  Sex: Male
  Weight: 186.3 kg

DRUGS (4)
  1. PALIPERIDONE [Suspect]
     Active Substance: PALIPERIDONE
     Indication: Schizophrenia
     Dosage: OTHER QUANTITY : 1 INJECTION(S);?OTHER FREQUENCY : 3 WEEKS;?
     Route: 030
  2. Metaformin [Concomitant]
  3. OZEMPIC [Concomitant]
     Active Substance: SEMAGLUTIDE
  4. Alegra 12 hours [Concomitant]

REACTIONS (9)
  - Nerve compression [None]
  - Cerebral disorder [None]
  - Anxiety [None]
  - Hallucination, auditory [None]
  - Heart rate irregular [None]
  - Nightmare [None]
  - Hypersensitivity [None]
  - Weight increased [None]
  - Asthenia [None]

NARRATIVE: CASE EVENT DATE: 20230405
